FAERS Safety Report 8068611 (Version 6)
Quarter: 2013Q1

REPORT INFORMATION
  Report Type: Report from Study
  Country: CA (occurrence: CA)
  Receive Date: 20110804
  Receipt Date: 20130312
  Transmission Date: 20140127
  Serious: Yes (Hospitalization, Disabling, Other)
  Sender: FDA-Public Use
  Company Number: CA-BRISTOL-MYERS SQUIBB COMPANY-15890262

PATIENT
  Age: 56 Year
  Sex: Male

DRUGS (4)
  1. IPILIMUMAB [Suspect]
     Indication: MALIGNANT MELANOMA
     Dosage: INT 22JUL11, COURSE 2
     Route: 042
     Dates: start: 20110615
  2. LIPITOR [Concomitant]
     Dates: start: 2009
  3. COUMADIN [Concomitant]
     Dates: start: 201101
  4. OXYCONTIN [Concomitant]
     Dates: start: 201101

REACTIONS (1)
  - Adrenal insufficiency [Recovered/Resolved]
